FAERS Safety Report 5222327-6 (Version None)
Quarter: 2007Q1

REPORT INFORMATION
  Report Type: 
  Country: None (occurrence: None)
  Receive Date: 20070129
  Receipt Date: 20070123
  Transmission Date: 20070707
  Serious: Yes (Other)
  Sender: FDA-Public Use
  Company Number: US-AVENTIS-200619210US

PATIENT

DRUGS (2)
  1. KETEK [Suspect]
     Indication: BRONCHITIS
     Dosage: DOSE: UNKNOWN
     Dates: start: 20060808
  2. KETEK [Suspect]
     Indication: OTITIS MEDIA
     Dosage: DOSE: UNKNOWN
     Dates: start: 20060808

REACTIONS (3)
  - ALANINE AMINOTRANSFERASE INCREASED [None]
  - ASPARTATE AMINOTRANSFERASE INCREASED [None]
  - HEPATIC ENZYME INCREASED [None]
